FAERS Safety Report 14674526 (Version 1)
Quarter: 2018Q1

REPORT INFORMATION
  Report Type: Spontaneous
  Country: CA (occurrence: CA)
  Receive Date: 20180323
  Receipt Date: 20180323
  Transmission Date: 20180509
  Serious: Yes (Life-Threatening)
  Sender: FDA-Public Use
  Company Number: CA-BAYER-2018-051786

PATIENT
  Age: 34 Year
  Sex: Female
  Weight: 48 kg

DRUGS (2)
  1. MIRENA [Suspect]
     Active Substance: LEVONORGESTREL
     Indication: MENORRHAGIA
  2. MIRENA [Suspect]
     Active Substance: LEVONORGESTREL
     Indication: MENORRHAGIA
     Dosage: 20 MCG/24HR, CONT
     Route: 015

REACTIONS (9)
  - Ovulation pain [Unknown]
  - Dysmenorrhoea [Unknown]
  - Breast mass [Unknown]
  - Breast pain [Unknown]
  - Erythrosis [Unknown]
  - Sleep disorder [Unknown]
  - Oligomenorrhoea [Unknown]
  - Tachycardia [Unknown]
  - Breast cyst [Unknown]
